FAERS Safety Report 15392402 (Version 2)
Quarter: 2018Q4

REPORT INFORMATION
  Report Type: Spontaneous
  Country: US (occurrence: US)
  Receive Date: 20180917
  Receipt Date: 20181207
  Transmission Date: 20190204
  Serious: Yes (Hospitalization, Other)
  Sender: FDA-Public Use
  Company Number: US-GILEAD-2018-0362741

PATIENT
  Age: 40 Year
  Sex: Male
  Weight: 133.5 kg

DRUGS (4)
  1. YESCARTA [Suspect]
     Active Substance: AXICABTAGENE CILOLEUCEL
     Indication: DIFFUSE LARGE B-CELL LYMPHOMA REFRACTORY
     Dosage: 2 X10^8 CELLS/KG
     Route: 042
     Dates: start: 20180626, end: 20180626
  2. ACYCLOVIR [ACICLOVIR] [Concomitant]
     Active Substance: ACYCLOVIR
  3. CHOLECALCIFEROL [Concomitant]
     Active Substance: CHOLECALCIFEROL
  4. ESOMEPRAZOLE. [Concomitant]
     Active Substance: ESOMEPRAZOLE MAGNESIUM

REACTIONS (12)
  - Dysgraphia [Recovered/Resolved]
  - Tachycardia [Recovered/Resolved]
  - Cytokine release syndrome [Recovered/Resolved]
  - Neurotoxicity [Recovered/Resolved]
  - Hypoxia [Recovered/Resolved]
  - Headache [Recovered/Resolved]
  - Encephalopathy [Recovered/Resolved]
  - Dysmetria [Recovered/Resolved]
  - Herpes simplex [Unknown]
  - Pyrexia [Recovered/Resolved]
  - Aphasia [Recovered/Resolved]
  - Oral candidiasis [Unknown]

NARRATIVE: CASE EVENT DATE: 20180626
